FAERS Safety Report 8043726 (Version 2)
Quarter: 2013Q1

REPORT INFORMATION
  Report Type: Spontaneous
  Country: US (occurrence: US)
  Receive Date: 20110719
  Receipt Date: 20130111
  Transmission Date: 20140127
  Serious: Yes (Hospitalization)
  Sender: FDA-Public Use
  Company Number: US-GLAXOSMITHKLINE-A0910390A

PATIENT
  Age: 69 Year
  Sex: Female

DRUGS (2)
  1. AVANDIA [Suspect]
     Indication: DIABETES MELLITUS
     Dosage: 8MG PER DAY
     Route: 048
     Dates: start: 200307, end: 200603
  2. AVANDARYL [Suspect]
     Indication: DIABETES MELLITUS
     Route: 048
     Dates: start: 200702, end: 201009

REACTIONS (4)
  - Angina pectoris [Not Recovered/Not Resolved]
  - Myalgia [Unknown]
  - Dyspnoea [Unknown]
  - Cardiac operation [Unknown]
